FAERS Safety Report 9044740 (Version 1)
Quarter: 2013Q1

REPORT INFORMATION
  Report Type: Spontaneous
  Country: US (occurrence: US)
  Receive Date: 20130130
  Receipt Date: 20130130
  Transmission Date: 20140127
  Serious: No
  Sender: FDA-Public Use
  Company Number: US-ABBOTT-12P-163-0962725-00

PATIENT
  Sex: Male
  Weight: 121.67 kg

DRUGS (3)
  1. HUMIRA 40 MG/0.8 ML PEN [Suspect]
     Indication: CROHN^S DISEASE
     Route: 058
     Dates: start: 201112
  2. ACTOS [Concomitant]
     Indication: DIABETES MELLITUS
  3. JANUMET [Concomitant]
     Indication: DIABETES MELLITUS

REACTIONS (4)
  - Weight increased [Not Recovered/Not Resolved]
  - Crohn^s disease [Recovering/Resolving]
  - Nausea [Recovering/Resolving]
  - Diarrhoea [Recovering/Resolving]
